FAERS Safety Report 12338679 (Version 3)
Quarter: 2016Q3

REPORT INFORMATION
  Report Type: Spontaneous
  Country: US (occurrence: US)
  Receive Date: 20160505
  Receipt Date: 20160715
  Transmission Date: 20161109
  Serious: Yes (Other)
  Sender: FDA-Public Use
  Company Number: US-GLAXOSMITHKLINE-US2016052273

PATIENT
  Age: 69 Year
  Sex: Female

DRUGS (3)
  1. ADVAIR DISKUS [Suspect]
     Active Substance: FLUTICASONE PROPIONATE\SALMETEROL XINAFOATE
     Dosage: 250/50 MCG
  2. VENTOLIN HFA [Suspect]
     Active Substance: ALBUTEROL SULFATE
     Indication: ASTHMA
     Dosage: UNK, U
     Route: 055
     Dates: start: 2010
  3. ADVAIR DISKUS [Suspect]
     Active Substance: FLUTICASONE PROPIONATE\SALMETEROL XINAFOATE
     Indication: ASTHMA
     Dosage: UNK
     Dates: start: 2010

REACTIONS (6)
  - Expired product administered [Unknown]
  - Osteoporosis [Not Recovered/Not Resolved]
  - Back disorder [Not Recovered/Not Resolved]
  - Spinal operation [Recovered/Resolved]
  - Physiotherapy [Unknown]
  - Malaise [Unknown]

NARRATIVE: CASE EVENT DATE: 201502
